FAERS Safety Report 24158150 (Version 2)
Quarter: 2024Q3

REPORT INFORMATION
  Report Type: Spontaneous
  Country: US (occurrence: US)
  Receive Date: 20240731
  Receipt Date: 20240802
  Transmission Date: 20241017
  Serious: Yes (Hospitalization)
  Sender: BIOVITRUM
  Company Number: US-BIOVITRUM-2024-US-010412

PATIENT
  Age: 54 Year
  Sex: Female

DRUGS (1)
  1. GAMIFANT [Suspect]
     Active Substance: EMAPALUMAB-LZSG
     Indication: Rheumatic disorder
     Dates: start: 20240706

REACTIONS (2)
  - Face oedema [Unknown]
  - Off label use [Unknown]

NARRATIVE: CASE EVENT DATE: 20240729
